FAERS Safety Report 9864117 (Version 3)
Quarter: 2014Q2

REPORT INFORMATION
  Report Type: Spontaneous
  Country: AU (occurrence: AU)
  Receive Date: 20140203
  Receipt Date: 20140512
  Transmission Date: 20141212
  Serious: Yes (Death)
  Sender: FDA-Public Use
  Company Number: AU-PFIZER INC-2014031207

PATIENT
  Age: 48 Year
  Sex: Female
  Weight: 103.5 kg

DRUGS (14)
  1. LYRICA [Suspect]
     Indication: PAIN
     Dosage: 25 MG, 2X/DAY
     Route: 048
     Dates: start: 20131105
  2. LYRICA [Suspect]
     Dosage: 300 MG, 2X/DAY
     Route: 048
  3. PANADEINE FORTE [Suspect]
     Dosage: UNK
  4. LOVAN [Concomitant]
     Dosage: 20 MG, 3X/DAY WHEN REQUIRED
     Route: 048
  5. MERSYNDOL FORTE [Concomitant]
     Dosage: 2 DF, 3X/DAY WHEN REQUIRED
     Route: 048
  6. NORSPAN [Concomitant]
  7. STEMETIL [Concomitant]
     Dosage: 5 MG, 3X/DAY WHEN REQUIRED
     Route: 048
  8. BRUFEN [Concomitant]
     Dosage: 400 MG, 3X/DAY WHEN REQUIRED
     Route: 048
  9. ALEPAM [Concomitant]
     Dosage: 30 MG, 3X/DAY WHEN REQUIRED
     Route: 048
  10. DIAZEPAM [Concomitant]
     Dosage: 5 MG, 3X/DAY WHEN REQUIRED
     Route: 048
  11. NORIMIN [Concomitant]
     Dosage: 1 DF, DAILY
     Route: 048
  12. PHENERGAN [Concomitant]
     Dosage: 25 MG, 1-2 AT NIGHT WHEN REQUIRED
     Route: 048
  13. TEMAZEPAM [Concomitant]
     Dosage: 10 MG, 1X/NIGHT WHEN REQUIRED
     Route: 048
  14. VOLTAREN [Concomitant]
     Dosage: 25 MG, 3X/DAY WHEN REQUIRED
     Route: 048

REACTIONS (3)
  - Intentional overdose [Fatal]
  - Completed suicide [Fatal]
  - Toxicity to various agents [Fatal]
